FAERS Safety Report 4314762-5 (Version None)
Quarter: 2004Q1

REPORT INFORMATION
  Report Type: 
  Country: None (occurrence: None)
  Receive Date: 20040308
  Receipt Date: 20040225
  Transmission Date: 20041129
  Serious: Yes (Hospitalization)
  Sender: FDA-Public Use
  Company Number: NL-JNJFOC-20040206104

PATIENT
  Age: 41 Year
  Sex: Male

DRUGS (1)
  1. RISPERDAL [Suspect]
     Indication: PSYCHOTIC DISORDER
     Dosage: 8 MG, IN 1 DAY; IN 1 DAY

REACTIONS (10)
  - BRADYCARDIA [None]
  - CARDIOMEGALY [None]
  - DYSPNOEA [None]
  - HYPOTHERMIA [None]
  - OVERDOSE [None]
  - OXYGEN SATURATION DECREASED [None]
  - RHONCHI [None]
  - SOMNOLENCE [None]
  - SUICIDE ATTEMPT [None]
  - TRANSFUSION REACTION [None]
